FAERS Safety Report 9321501 (Version 1)
Quarter: 2013Q2

REPORT INFORMATION
  Report Type: Spontaneous
  Country: BR (occurrence: BR)
  Receive Date: 20130531
  Receipt Date: 20130531
  Transmission Date: 20140414
  Serious: Yes (Other)
  Sender: FDA-Public Use
  Company Number: PHHY2013BR054715

PATIENT
  Sex: Female

DRUGS (5)
  1. CODATEN [Suspect]
     Dosage: UNK UKN, UNK
  2. ACTEMRA [Suspect]
     Indication: RHEUMATOID ARTHRITIS
     Dosage: UNK UKN, UNK
  3. ANCORON [Concomitant]
     Indication: CARDIAC DISORDER
     Dosage: UNK UKN, UNK
  4. CORTICOSTEROID NOS [Concomitant]
     Dosage: UNK UKN, UNK
  5. ANTIINFLAMMATORY AGENTS [Concomitant]
     Dosage: UNK UKN, UNK

REACTIONS (9)
  - Intervertebral disc protrusion [Unknown]
  - Blood thyroid stimulating hormone increased [Unknown]
  - Blood thyroid stimulating hormone decreased [Unknown]
  - Rheumatoid factor decreased [Unknown]
  - Joint swelling [Recovered/Resolved]
  - Arthralgia [Recovered/Resolved]
  - Liver function test abnormal [Unknown]
  - Alopecia [Unknown]
  - Drug intolerance [Unknown]
